FAERS Safety Report 18372280 (Version 2)
Quarter: 2020Q4

REPORT INFORMATION
  Report Type: Spontaneous
  Country: US (occurrence: US)
  Receive Date: 20201012
  Receipt Date: 20201118
  Transmission Date: 20210114
  Serious: Yes (Death)
  Sender: FDA-Public Use
  Company Number: US-PFIZER INC-2020391439

PATIENT
  Age: 52 Year
  Sex: Male

DRUGS (2)
  1. LIDOCAINE HCL [Suspect]
     Active Substance: LIDOCAINE HYDROCHLORIDE
     Indication: VENTRICULAR TACHYCARDIA
     Dosage: 100 MG (BOLUS) (2 MG PER MIN DRIP AT 2:40 A.M.)
  2. LIDOCAINE HCL [Suspect]
     Active Substance: LIDOCAINE HYDROCHLORIDE
     Dosage: 100 MG (BOLUS) AT APPROXIMATELY 4:00 A.M.

REACTIONS (4)
  - Seizure [Fatal]
  - Overdose [Fatal]
  - Respiratory arrest [Fatal]
  - Electrocardiogram QRS complex [Fatal]
